FAERS Safety Report 9290329 (Version 1)
Quarter: 2013Q2

REPORT INFORMATION
  Report Type: Spontaneous
  Country: US (occurrence: None)
  Receive Date: 20130514
  Receipt Date: 20130514
  Transmission Date: 20140414
  Serious: Yes (Hospitalization)
  Sender: FDA-Public Use
  Company Number: None

PATIENT
  Age: 85 Year
  Sex: Female
  Weight: 78.61 kg

DRUGS (1)
  1. LENALIDOMIDE [Suspect]
     Indication: PLASMA CELL MYELOMA
     Dosage: 10MG DAILY FOR 21 DAYS PO
     Route: 048
     Dates: start: 20130415, end: 20130504

REACTIONS (5)
  - Acute respiratory distress syndrome [None]
  - Respiratory failure [None]
  - Cardiac failure congestive [None]
  - Atelectasis [None]
  - Hiatus hernia [None]
